FAERS Safety Report 20422148 (Version 1)
Quarter: 2022Q1

REPORT INFORMATION
  Report Type: Spontaneous
  Country: CA (occurrence: CA)
  Receive Date: 20220203
  Receipt Date: 20220203
  Transmission Date: 20220423
  Serious: Yes (Other)
  Sender: FDA-Public Use
  Company Number: CA-PFIZER INC-202200148102

PATIENT
  Age: 61 Year
  Sex: Female

DRUGS (1)
  1. SULFASALAZINE [Suspect]
     Active Substance: SULFASALAZINE

REACTIONS (9)
  - Inflammation [Not Recovered/Not Resolved]
  - Gastrooesophageal reflux disease [Unknown]
  - Productive cough [Unknown]
  - Lip swelling [Unknown]
  - Swollen tongue [Unknown]
  - Emphysema [Not Recovered/Not Resolved]
  - Joint swelling [Not Recovered/Not Resolved]
  - Musculoskeletal stiffness [Not Recovered/Not Resolved]
  - Arthralgia [Not Recovered/Not Resolved]
